FAERS Safety Report 9319373 (Version 1)
Quarter: 2013Q2

REPORT INFORMATION
  Report Type: Spontaneous
  Country: US (occurrence: None)
  Receive Date: 20130529
  Receipt Date: 20130529
  Transmission Date: 20140414
  Serious: Yes (Other)
  Sender: FDA-Public Use
  Company Number: None

PATIENT
  Age: 92 Year
  Sex: Male
  Weight: 56.25 kg

DRUGS (1)
  1. RANEXA ER 500MG GILEAD SCI [Suspect]
     Dosage: APR. 2,3,4,2013?ONE TABE TWICE DAY

REACTIONS (1)
  - Hallucination, auditory [None]
